FAERS Safety Report 5080493-X (Version None)
Quarter: 2006Q3

REPORT INFORMATION
  Report Type: 
  Country: None (occurrence: None)
  Receive Date: 20060815
  Receipt Date: 20000720
  Transmission Date: 20061208
  Serious: Yes (Hospitalization)
  Sender: FDA-Public Use
  Company Number: FR-SOLVAY-00200005340

PATIENT
  Age: 80 Year

DRUGS (5)
  1. MONICOR [Concomitant]
     Indication: ILL-DEFINED DISORDER
     Dosage: DAILY DOSE: UNK. FREQUENCY:UNKNOWN
     Route: 065
  2. COVERSYL [Suspect]
     Indication: CARDIAC FAILURE CONGESTIVE
     Dosage: DAILY DOSE: 2 MG. FREQUENCY:UNKNOWN
     Route: 048
     Dates: start: 19960422
  3. COVERSYL [Suspect]
     Dosage: DAILY DOSE: 4 MG.
     Route: 048
  4. VASTAREL [Concomitant]
     Indication: ILL-DEFINED DISORDER
     Dosage: DAILY DOSE: UNK. FREQUENCY:UNKNOWN
     Route: 065
  5. ASPIRIN [Concomitant]
     Indication: ILL-DEFINED DISORDER
     Dosage: DAILY DOSE: UNK. FREQUENCY:UNKNOWN
     Route: 065

REACTIONS (7)
  - ASTHENIA [None]
  - BUNDLE BRANCH BLOCK [None]
  - CARDIOVASCULAR DISORDER [None]
  - CHOLELITHIASIS [None]
  - CONDUCTION DISORDER [None]
  - DYSPNOEA [None]
  - MUSCULAR WEAKNESS [None]
